FAERS Safety Report 9206146 (Version 1)
Quarter: 2013Q1

REPORT INFORMATION
  Report Type: Spontaneous
  Country: US (occurrence: None)
  Receive Date: 20120709
  Receipt Date: 20120709
  Transmission Date: 20140127
  Serious: Yes (Disabling, Other)
  Sender: FDA-Public Use
  Company Number: PHHY2010US33612

PATIENT
  Age: 49 Year
  Sex: Male
  Weight: 83 kg

DRUGS (2)
  1. GLEEVEC (IMATINIB) UNKNOWN [Suspect]
     Indication: CHRONIC MYELOID LEUKAEMIA
     Route: 048
     Dates: start: 20100412, end: 20100512
  2. FORTEO [Suspect]
     Dates: end: 20100513

REACTIONS (5)
  - Weight decreased [None]
  - Diarrhoea [None]
  - Decreased appetite [None]
  - Fatigue [None]
  - Confusional state [None]
